FAERS Safety Report 24014885 (Version 1)
Quarter: 2024Q2

REPORT INFORMATION
  Report Type: Spontaneous
  Country: HU (occurrence: HU)
  Receive Date: 20240626
  Receipt Date: 20240626
  Transmission Date: 20240716
  Serious: Yes (Other)
  Sender: FDA-Public Use
  Company Number: HU-AMGEN-HUNSP2024122599

PATIENT
  Age: 41 Year
  Sex: Male

DRUGS (1)
  1. LUMAKRAS [Suspect]
     Active Substance: SOTORASIB
     Indication: Bile duct cancer
     Dosage: 120 MILLIGRAM, QD (1 TABLET OF 120 MG)
     Route: 065

REACTIONS (2)
  - Bile duct cancer [Unknown]
  - Off label use [Unknown]
